FAERS Safety Report 21434342 (Version 1)
Quarter: 2022Q4

REPORT INFORMATION
  Report Type: Spontaneous
  Country: CZ (occurrence: CZ)
  Receive Date: 20221010
  Receipt Date: 20221010
  Transmission Date: 20230113
  Serious: Yes (Other)
  Sender: FDA-Public Use
  Company Number: CZ-SA-SAC20221007000091

PATIENT
  Sex: Male

DRUGS (2)
  1. CABLIVI [Suspect]
     Active Substance: CAPLACIZUMAB-YHDP
     Indication: Thrombotic thrombocytopenic purpura
  2. UNSPECIFIED INGREDIENT [Concomitant]
     Active Substance: UNSPECIFIED INGREDIENT
     Dosage: UNK
     Dates: start: 20220929

REACTIONS (2)
  - Thrombotic thrombocytopenic purpura [Unknown]
  - Platelet count decreased [Unknown]
